FAERS Safety Report 9315570 (Version 1)
Quarter: 2013Q2

REPORT INFORMATION
  Report Type: Spontaneous
  Country: US (occurrence: US)
  Receive Date: 20130529
  Receipt Date: 20130529
  Transmission Date: 20140414
  Serious: Yes (Other)
  Sender: FDA-Public Use
  Company Number: US-ASTRAZENECA-2013SE35531

PATIENT
  Age: 69 Year
  Sex: Female

DRUGS (6)
  1. ARIMIDEX [Suspect]
     Indication: BREAST CANCER FEMALE
     Route: 048
     Dates: start: 20121212
  2. CHOLESTEROL MEDICINE [Concomitant]
  3. PRAVASTATIN [Concomitant]
     Indication: BLOOD CHOLESTEROL ABNORMAL
     Route: 048
  4. MULTI VITAMIN [Concomitant]
     Route: 048
  5. B COMPLEX [Concomitant]
     Route: 048
  6. CALCITRATE PLUS D [Concomitant]
     Route: 048
     Dates: start: 201212

REACTIONS (2)
  - Musculoskeletal stiffness [Not Recovered/Not Resolved]
  - Asthenia [Not Recovered/Not Resolved]
